FAERS Safety Report 14480330 (Version 1)
Quarter: 2018Q1

REPORT INFORMATION
  Report Type: Spontaneous
  Country: IT (occurrence: IT)
  Receive Date: 20180202
  Receipt Date: 20180202
  Transmission Date: 20180509
  Serious: Yes (Other)
  Sender: FDA-Public Use
  Company Number: IT-TEVA-2018-IT-852491

PATIENT
  Age: 49 Year
  Sex: Male

DRUGS (2)
  1. IBUPROFEN. [Suspect]
     Active Substance: IBUPROFEN
     Indication: ARTHRALGIA
     Dosage: IN TOTAL
     Route: 048
     Dates: start: 20171204, end: 20171204
  2. ENALAPRIL [Concomitant]
     Active Substance: ENALAPRIL
     Route: 048

REACTIONS (1)
  - Erosive duodenitis [Recovering/Resolving]

NARRATIVE: CASE EVENT DATE: 20171204
